FAERS Safety Report 9658009 (Version 2)
Quarter: 2013Q4

REPORT INFORMATION
  Report Type: Spontaneous
  Country: CA (occurrence: None)
  Receive Date: 20131029
  Receipt Date: 20131217
  Transmission Date: 20140711
  Serious: Yes (Other)
  Sender: FDA-Public Use
  Company Number: CA-013368

PATIENT
  Age: 65 Year
  Sex: Female
  Weight: 54.43 kg

DRUGS (2)
  1. PICO-SALAX [Suspect]
     Indication: BOWEL PREPARATION
     Route: 048
     Dates: start: 20130613
  2. IRBESARTAN [Concomitant]

REACTIONS (9)
  - Asthenia [None]
  - Blood pressure increased [None]
  - Blood sodium decreased [None]
  - Disorientation [None]
  - Dizziness [None]
  - Headache [None]
  - Nausea [None]
  - Palpitations [None]
  - Vomiting [None]
